FAERS Safety Report 9398410 (Version 1)
Quarter: 2013Q3

REPORT INFORMATION
  Report Type: Spontaneous
  Country: US (occurrence: GB)
  Receive Date: 20130712
  Receipt Date: 20130712
  Transmission Date: 20140515
  Serious: Yes (Disabling, Other)
  Sender: FDA-Public Use
  Company Number: US-WATSON-2013-12259

PATIENT
  Age: 63 Year
  Sex: Male

DRUGS (4)
  1. OMEPRAZOLE (UNKNOWN) [Suspect]
     Indication: PRODUCT USED FOR UNKNOWN INDICATION
     Dosage: 40 MG, DAILY
     Route: 065
  2. VFEND [Suspect]
     Indication: CEREBRAL ASPERGILLOSIS
     Dosage: 4 MG/KG, UNKNOWN
     Route: 042
  3. VFEND [Suspect]
     Dosage: 6 MG/ML, BID
     Route: 042
  4. VFEND [Suspect]
     Dosage: 6 MG/KG, UNKNOWN
     Route: 042
     Dates: start: 20130227

REACTIONS (2)
  - Toxicity to various agents [Not Recovered/Not Resolved]
  - Drug level increased [Not Recovered/Not Resolved]
